FAERS Safety Report 4751320-2 (Version None)
Quarter: 2005Q3

REPORT INFORMATION
  Report Type: 
  Country: None (occurrence: None)
  Receive Date: 20050822
  Receipt Date: 20050808
  Transmission Date: 20060218
  Serious: Yes (Other)
  Sender: FDA-Public Use
  Company Number: 2005112501

PATIENT
  Age: 75 Year
  Sex: Male
  Weight: 79.8331 kg

DRUGS (3)
  1. DETROL LA [Suspect]
     Indication: URINARY INCONTINENCE
     Dosage: ORAL
     Route: 048
  2. ALL OTHER THERAPEUTIC PRODUCTS [Concomitant]
  3. TEMAZEPAM [Concomitant]

REACTIONS (4)
  - CORONARY ARTERY DISEASE [None]
  - HEPATIC NEOPLASM MALIGNANT [None]
  - LUNG NEOPLASM MALIGNANT [None]
  - NEOPLASM MALIGNANT [None]
